FAERS Safety Report 25741970 (Version 1)
Quarter: 2025Q3

REPORT INFORMATION
  Report Type: Spontaneous
  Country: US (occurrence: None)
  Receive Date: 20250829
  Receipt Date: 20250829
  Transmission Date: 20251021
  Serious: Yes (Life-Threatening, Hospitalization)
  Sender: FDA-CTU
  Company Number: None

PATIENT
  Age: 73 Year
  Sex: Female
  Weight: 67.5 kg

DRUGS (1)
  1. ZOLPIDEM [Suspect]
     Active Substance: ZOLPIDEM TARTRATE
     Indication: Insomnia
     Dates: start: 20190801, end: 20250822

REACTIONS (5)
  - Amnesia [None]
  - Diplopia [None]
  - Cognitive disorder [None]
  - Thinking abnormal [None]
  - Impaired driving ability [None]

NARRATIVE: CASE EVENT DATE: 20250821
